FAERS Safety Report 8507476-9 (Version None)
Quarter: 2012Q3

REPORT INFORMATION
  Report Type: 
  Country: None (occurrence: None)
  Receive Date: 20120712
  Receipt Date: 20120207
  Transmission Date: 20120928
  Serious: Yes (Hospitalization, Other)
  Sender: FDA-Public Use
  Company Number: PHHY2010US78968

PATIENT
  Age: 63 Year
  Sex: Female

DRUGS (3)
  1. LISINOPRIL [Concomitant]
  2. DEFERASIROX [Suspect]
     Indication: IRON OVERLOAD
     Dosage: 500 MG, TID
  3. ESTROGEN NOS [Concomitant]

REACTIONS (19)
  - HEPATIC STEATOSIS [None]
  - OCULAR ICTERUS [None]
  - DRUG-INDUCED LIVER INJURY [None]
  - INTERNATIONAL NORMALISED RATIO INCREASED [None]
  - CONFUSIONAL STATE [None]
  - HAEMOGLOBIN DECREASED [None]
  - DIARRHOEA [None]
  - HEPATITIS ACUTE [None]
  - CHROMATURIA [None]
  - NAUSEA [None]
  - FATIGUE [None]
  - ASCITES [None]
  - BLOOD PRESSURE DECREASED [None]
  - WHITE BLOOD CELL COUNT INCREASED [None]
  - HEPATIC FUNCTION ABNORMAL [None]
  - JAUNDICE [None]
  - YELLOW SKIN [None]
  - ABDOMINAL PAIN [None]
  - RENAL FAILURE ACUTE [None]
